FAERS Safety Report 6157430-X (Version None)
Quarter: 2009Q2

REPORT INFORMATION
  Report Type: 
  Country: None (occurrence: None)
  Receive Date: 20090416
  Receipt Date: 20090407
  Transmission Date: 20091009
  Serious: Yes (Hospitalization, Other)
  Sender: FDA-Public Use
  Company Number: FR-PFIZER INC-2009194367

PATIENT

DRUGS (8)
  1. TAHOR [Suspect]
  2. MEDIATOR [Suspect]
     Indication: DIABETES MELLITUS
     Dosage: 150 MG, 3X/DAY
     Dates: start: 19980101, end: 20080101
  3. ART 50 [Suspect]
  4. LEVOTHYROXINE SODIUM [Suspect]
  5. NOCTRAN 10 [Suspect]
  6. LAROXYL [Suspect]
  7. NEULEPTIL [Suspect]
  8. PROZAC [Suspect]
     Indication: DEPRESSION

REACTIONS (3)
  - MITRAL VALVE DISEASE [None]
  - MITRAL VALVE INCOMPETENCE [None]
  - PLEURAL EFFUSION [None]
